FAERS Safety Report 5496040-4 (Version None)
Quarter: 2007Q4

REPORT INFORMATION
  Report Type: 
  Country: None (occurrence: None)
  Receive Date: 20071025
  Receipt Date: 20070119
  Transmission Date: 20080405
  Serious: No
  Sender: FDA-Public Use
  Company Number: A0635535A

PATIENT
  Age: 62 Year
  Sex: Female

DRUGS (13)
  1. ADVAIR DISKUS 100/50 [Suspect]
     Indication: ASTHMA
     Dosage: 1PUFF TWICE PER DAY
     Route: 055
     Dates: start: 20070101
  2. PAXIL [Concomitant]
  3. LEVOTHYROXINE SODIUM [Concomitant]
  4. ALPRAZOLAM [Concomitant]
  5. CLARITIN-D [Concomitant]
  6. ASPIRIN [Concomitant]
  7. SENOKOT [Concomitant]
  8. UNKNOWN [Concomitant]
  9. TRAZODONE HCL [Concomitant]
  10. VALIUM [Concomitant]
  11. ESTRADIOL [Concomitant]
  12. FLEXERIL [Concomitant]
  13. DARVOCET-N 100 [Concomitant]

REACTIONS (4)
  - ANXIETY [None]
  - MUSCLE TIGHTNESS [None]
  - SLEEP DISORDER [None]
  - TREMOR [None]
